FAERS Safety Report 13036662 (Version 1)
Quarter: 2016Q4

REPORT INFORMATION
  Report Type: Spontaneous
  Country: US (occurrence: US)
  Receive Date: 20161216
  Receipt Date: 20161216
  Transmission Date: 20170207
  Serious: No
  Sender: FDA-Public Use
  Company Number: US-JUBILANT HOLLISTERSTIER LLC-1060922

PATIENT
  Age: 49 Year
  Sex: Female

DRUGS (89)
  1. PECAN FOOD [Suspect]
     Active Substance: PECAN
  2. FLOUNDER [Suspect]
     Active Substance: FLOUNDER, UNSPECIFIED
  3. TOMATO. [Suspect]
     Active Substance: TOMATO
  4. INSECTS (WHOLE BODY) COCKROACH MIX [Suspect]
     Active Substance: BLATELLA GERMANICA\PERIPLANETA AMERICANA
  5. PENICILLIUM MIXTURE [Suspect]
     Active Substance: PENICILLIUM CAMEMBERTI\PENICILLIUM CHRYSOGENUM VAR. CHRYSOGENUM\PENICILLIUM EXPANSUM\PENICILLIUM ITALICUM\PENICILLIUM ROQUEFORTI
  6. AUREOBASIDIUM PULLULANS [Suspect]
     Active Substance: AUREOBASIDIUM PULLULANS VAR. PULLUTANS
  7. AUREOBASIDIUM PULLULANS [Suspect]
     Active Substance: AUREOBASIDIUM PULLULANS VAR. PULLUTANS
  8. STANDARDIZED GRASS POLLEN, SWEET VERNAL GRASS [Suspect]
     Active Substance: ANTHOXANTHUM ODORATUM POLLEN
  9. POLLENS - WEEDS AND GARDEN PLANTS, PIGWEED, ROUGH REDROOT AMARANTHUS RETROFLEXUS [Suspect]
     Active Substance: AMARANTHUS RETROFLEXUS POLLEN
  10. RED MULBERRY POLLEN [Suspect]
     Active Substance: MORUS RUBRA POLLEN
  11. RED MULBERRY POLLEN [Suspect]
     Active Substance: MORUS RUBRA POLLEN
  12. AMERICAN BEECH POLLEN [Suspect]
     Active Substance: FAGUS GRANDIFOLIA POLLEN
  13. PECAN POLLEN [Suspect]
     Active Substance: CARYA ILLINOINENSIS POLLEN
  14. RED CEDAR POLLEN [Suspect]
     Active Substance: JUNIPERUS VIRGINIANA POLLEN
  15. BIRCH MIXTURE [Suspect]
     Active Substance: BETULA ALLEGHANIENSIS POLLEN\BETULA LENTA POLLEN\BETULA NIGRA POLLEN\BETULA OCCIDENTALIS POLLEN\BETULA PAPYRIFERA POLLEN\BETULA POPULIFOLIA POLLEN
  16. WHOLE EGG [Suspect]
     Active Substance: EGG
  17. LIMA BEAN. [Suspect]
     Active Substance: LIMA BEAN
  18. LIMA BEAN. [Suspect]
     Active Substance: LIMA BEAN
  19. NEUROSPORA INTERMEDIA. [Suspect]
     Active Substance: NEUROSPORA INTERMEDIA
  20. NEUROSPORA INTERMEDIA. [Suspect]
     Active Substance: NEUROSPORA INTERMEDIA
  21. RHIZOPUS (RHIZOPUS STOLONIFER) [Suspect]
     Active Substance: RHIZOPUS STOLONIFER
  22. ORCHARD GRASS, STANDARDIZED [Suspect]
     Active Substance: DACTYLIS GLOMERATA POLLEN
  23. ENGLISH PLANTAIN POLLEN [Suspect]
     Active Substance: PLANTAGO LANCEOLATA POLLEN
  24. EASTERN WHITE PINE POLLEN [Suspect]
     Active Substance: PINUS STROBUS POLLEN
  25. OAK MIXTURE [Suspect]
     Active Substance: QUERCUS ALBA POLLEN\QUERCUS MACROCARPA POLLEN\QUERCUS MUEHLENBERGII POLLEN\QUERCUS PALUSTRIS POLLEN\QUERCUS RUBRA POLLEN\QUERCUS STELLATA POLLEN\QUERCUS VELUTINA POLLEN\QUERCUS VIRGINIANA POLLEN
  26. GREEN PEA [Suspect]
     Active Substance: PEA
  27. ENGLISH WALNUT FOOD [Suspect]
     Active Substance: ENGLISH WALNUT
  28. NEUROSPORA INTERMEDIA. [Suspect]
     Active Substance: NEUROSPORA INTERMEDIA
  29. ORRIS ROOT [Suspect]
     Active Substance: IRIS GERMANICA VAR. FLORENTINA ROOT
  30. CLADOSPORIUM [Suspect]
     Active Substance: CLADOSPORIUM HERBARUM
  31. CLADOSPORIUM [Suspect]
     Active Substance: CLADOSPORIUM HERBARUM
  32. FUSARIUM [Suspect]
     Active Substance: HAEMATONECTRIA HAEMATOCOCCA
  33. JOHNSON GRASS POLLEN [Suspect]
     Active Substance: SORGHUM HALEPENSE POLLEN
  34. MEADOW FESCUE GRASS, STANDARDIZED [Suspect]
     Active Substance: FESTUCA PRATENSIS POLLEN
  35. REDTOP GRASS, STANDARDIZED [Suspect]
     Active Substance: AGROSTIS GIGANTEA POLLEN
  36. POLLENS - WEEDS AND GARDEN PLANTS, PIGWEED, ROUGH REDROOT AMARANTHUS RETROFLEXUS [Suspect]
     Active Substance: AMARANTHUS RETROFLEXUS POLLEN
  37. AMERICAN BEECH POLLEN [Suspect]
     Active Substance: FAGUS GRANDIFOLIA POLLEN
  38. WHITE ALDER [Suspect]
     Active Substance: ALNUS RHOMBIFOLIA POLLEN
  39. EGG WHITE. [Suspect]
     Active Substance: EGG WHITE
  40. LIMA BEAN. [Suspect]
     Active Substance: LIMA BEAN
  41. MOUSE EPITHELIA [Suspect]
     Active Substance: MUS MUSCULUS SKIN
  42. ASPERGILLUS NIGER VAR NIGER [Suspect]
     Active Substance: ASPERGILLUS NIGER VAR. NIGER
  43. PENICILLIUM MIXTURE [Suspect]
     Active Substance: PENICILLIUM CAMEMBERTI\PENICILLIUM CHRYSOGENUM VAR. CHRYSOGENUM\PENICILLIUM EXPANSUM\PENICILLIUM ITALICUM\PENICILLIUM ROQUEFORTI
  44. FUSARIUM [Suspect]
     Active Substance: HAEMATONECTRIA HAEMATOCOCCA
  45. EPICOCCUM NIGRUM. [Suspect]
     Active Substance: EPICOCCUM NIGRUM
  46. BERMUDA GRASS, STANDARDIZED [Suspect]
     Active Substance: CYNODON DACTYLON POLLEN
  47. POLLENS - WEEDS AND GARDEN PLANTS, PIGWEED, ROUGH REDROOT AMARANTHUS RETROFLEXUS [Suspect]
     Active Substance: AMARANTHUS RETROFLEXUS POLLEN
  48. ENGLISH PLANTAIN POLLEN [Suspect]
     Active Substance: PLANTAGO LANCEOLATA POLLEN
  49. EASTERN WHITE PINE POLLEN [Suspect]
     Active Substance: PINUS STROBUS POLLEN
  50. EASTERN COTTONWOOD POLLEN [Suspect]
     Active Substance: POPULUS DELTOIDES POLLEN
  51. ONION. [Suspect]
     Active Substance: ONION
  52. CRAB [Suspect]
     Active Substance: CRAB LEG, UNSPECIFIED\OPILIO CRAB
  53. YELLOW SQUASH [Suspect]
     Active Substance: SQUASH
  54. MIXED ASPERGILLUS [Suspect]
     Active Substance: ASPERGILLUS FLAVUS VAR. ORYZAE\ASPERGILLUS NIGER VAR. NIGER\ASPERGILLUS REPENS\ASPERGILLUS TERREUS
  55. PHOMA (PLEOSPORA BETAE) [Suspect]
     Active Substance: PLEOSPORA BETAE
  56. EASTERN WHITE PINE POLLEN [Suspect]
     Active Substance: PINUS STROBUS POLLEN
  57. AMERICAN BEECH POLLEN [Suspect]
     Active Substance: FAGUS GRANDIFOLIA POLLEN
  58. POLLENS - TREES, GS EASTERN 10 TREE MIX [Suspect]
     Active Substance: ACER SACCHARUM POLLEN\BETULA NIGRA POLLEN\CARYA OVATA POLLEN\FAGUS GRANDIFOLIA POLLEN\FRAXINUS AMERICANA POLLEN\LIQUIDAMBAR STYRACIFLUA POLLEN\PLATANUS OCCIDENTALIS POLLEN\POPULUS DELTOIDES SUBSP. DELTOIDES POLLEN\QUERCUS RUBRA POLLEN\ULMUS AMERICANA POLLEN
  59. POSITIVE SKIN TEST CONTROL - HISTAMINE [Suspect]
     Active Substance: HISTAMINE
     Indication: ALLERGY TEST
  60. GARLIC. [Suspect]
     Active Substance: GARLIC
  61. LAKE TROUT [Suspect]
     Active Substance: TROUT, UNSPECIFIED
  62. SHRIMP [Suspect]
     Active Substance: SHRIMP, UNSPECIFIED
  63. WHOLE WHEAT [Suspect]
     Active Substance: WHEAT
  64. STANDARDIZED CAT HAIR [Suspect]
     Active Substance: FELIS CATUS HAIR
  65. RHIZOPUS (RHIZOPUS STOLONIFER) [Suspect]
     Active Substance: RHIZOPUS STOLONIFER
  66. KENTUCKY BLUEGRASS (JUNE), STANDARDIZED [Suspect]
     Active Substance: POA PRATENSIS POLLEN
  67. PLACEBO [Suspect]
     Active Substance: UNSPECIFIED INGREDIENT
  68. OAK MIXTURE [Suspect]
     Active Substance: QUERCUS ALBA POLLEN\QUERCUS MACROCARPA POLLEN\QUERCUS MUEHLENBERGII POLLEN\QUERCUS PALUSTRIS POLLEN\QUERCUS RUBRA POLLEN\QUERCUS STELLATA POLLEN\QUERCUS VELUTINA POLLEN\QUERCUS VIRGINIANA POLLEN
  69. ASH MIXTURE [Suspect]
     Active Substance: FRAXINUS AMERICANA POLLEN\FRAXINUS PENNSYLVANICA POLLEN
  70. BLACK WALNUT (JUGLANS NIGRA POLLEN) [Suspect]
     Active Substance: JUGLANS NIGRA POLLEN
  71. ALLERGEN PACK DOG EPITHELIA [Suspect]
     Active Substance: CANIS LUPUS FAMILIARIS SKIN\SODIUM CHLORIDE
  72. MIXED FEATHERS [Suspect]
     Active Substance: ANAS PLATYRHYNCHOS FEATHER\ANSER ANSER FEATHER\GALLUS GALLUS FEATHER
  73. AUREOBASIDIUM PULLULANS [Suspect]
     Active Substance: AUREOBASIDIUM PULLULANS VAR. PULLUTANS
  74. EPICOCCUM NIGRUM. [Suspect]
     Active Substance: EPICOCCUM NIGRUM
  75. EPICOCCUM NIGRUM. [Suspect]
     Active Substance: EPICOCCUM NIGRUM
  76. EASTERN WHITE PINE POLLEN [Suspect]
     Active Substance: PINUS STROBUS POLLEN
  77. OAK MIXTURE [Suspect]
     Active Substance: QUERCUS ALBA POLLEN\QUERCUS MACROCARPA POLLEN\QUERCUS MUEHLENBERGII POLLEN\QUERCUS PALUSTRIS POLLEN\QUERCUS RUBRA POLLEN\QUERCUS STELLATA POLLEN\QUERCUS VELUTINA POLLEN\QUERCUS VIRGINIANA POLLEN
  78. OAK MIXTURE [Suspect]
     Active Substance: QUERCUS ALBA POLLEN\QUERCUS MACROCARPA POLLEN\QUERCUS MUEHLENBERGII POLLEN\QUERCUS PALUSTRIS POLLEN\QUERCUS RUBRA POLLEN\QUERCUS STELLATA POLLEN\QUERCUS VELUTINA POLLEN\QUERCUS VIRGINIANA POLLEN
  79. MAPLE POLLEN MIXTURE [Suspect]
     Active Substance: ACER RUBRUM POLLEN\ACER SACCHARINUM POLLEN\ACER SACCHARUM POLLEN
  80. PECAN POLLEN [Suspect]
     Active Substance: CARYA ILLINOINENSIS POLLEN
  81. EASTERN SYCAMORE POLLEN [Suspect]
     Active Substance: PLATANUS OCCIDENTALIS POLLEN
  82. LAKE TROUT [Suspect]
     Active Substance: TROUT, UNSPECIFIED
  83. MOUSE EPITHELIA [Suspect]
     Active Substance: MUS MUSCULUS SKIN
  84. HAMSTER EPITHELIA [Suspect]
     Active Substance: MESOCRICETUS AURATUS SKIN
  85. CACAO BEAN [Suspect]
     Active Substance: COCOA
  86. PENICILLIUM MIXTURE [Suspect]
     Active Substance: PENICILLIUM CAMEMBERTI\PENICILLIUM CHRYSOGENUM VAR. CHRYSOGENUM\PENICILLIUM EXPANSUM\PENICILLIUM ITALICUM\PENICILLIUM ROQUEFORTI
  87. JOHNSON GRASS POLLEN [Suspect]
     Active Substance: SORGHUM HALEPENSE POLLEN
  88. STANDARDIZED PERENNIAL RYE GRASS [Suspect]
     Active Substance: LOLIUM PERENNE POLLEN
  89. RED CEDAR POLLEN [Suspect]
     Active Substance: JUNIPERUS VIRGINIANA POLLEN

REACTIONS (3)
  - Rhinorrhoea [Unknown]
  - Throat irritation [Unknown]
  - Cough [Unknown]
